FAERS Safety Report 5728008-4 (Version None)
Quarter: 2008Q2

REPORT INFORMATION
  Report Type: 
  Country: None (occurrence: None)
  Receive Date: 20080505
  Receipt Date: 20080407
  Transmission Date: 20081010
  Serious: No
  Sender: FDA-Public Use
  Company Number: US-BOEHRINGER INGELHEIM GMBH, GERMANY-2008-BP-05628BP

PATIENT
  Age: 13 Year
  Sex: Female

DRUGS (1)
  1. CATAPRES-TTS-1 [Suspect]
     Route: 061

REACTIONS (1)
  - APPLICATION SITE RASH [None]
